FAERS Safety Report 8275411-7 (Version None)
Quarter: 2012Q2

REPORT INFORMATION
  Report Type: 
  Country: None (occurrence: None)
  Receive Date: 20120411
  Receipt Date: 20120402
  Transmission Date: 20120825
  Serious: Yes (Hospitalization, Other)
  Sender: FDA-Public Use
  Company Number: DE-RB-038973-12

PATIENT
  Age: 91 Year
  Sex: Female

DRUGS (7)
  1. METFORMIN HCL [Suspect]
     Indication: DIABETES MELLITUS
     Dosage: DOSING DETAILS NOT PROVIDED
     Route: 065
  2. PLATELET ANTIAGGREGANT [Suspect]
     Indication: PRODUCT USED FOR UNKNOWN INDICATION
     Dosage: DOSING DETAILS NOT PROVIDED
     Route: 065
  3. LEVOFLOXACIN [Suspect]
     Indication: BACTERIAL INFECTION
     Dosage: DOSING DETAILS NOT PROVIDED
     Route: 065
  4. ORAL ANTIHYPERTENSIVE DRUGS [Suspect]
     Indication: HYPERTENSION
     Dosage: DOSING DETAILS NOT PROVIDED
     Route: 048
  5. BUPRENORPHINE [Suspect]
     Indication: PRODUCT USED FOR UNKNOWN INDICATION
     Dosage: DOSING DETAILS NOT PROVIDED
     Route: 065
  6. GLYBURIDE [Suspect]
     Indication: PRODUCT USED FOR UNKNOWN INDICATION
     Dosage: DOSING DETAILS NOT PROVIDED
     Route: 065
  7. HEPARIN [Suspect]
     Indication: PRODUCT USED FOR UNKNOWN INDICATION
     Dosage: DOSING DETAIL NOT PROVIDED
     Route: 065

REACTIONS (3)
  - DRUG INTERACTION [None]
  - HYPOGLYCAEMIA [None]
  - COMA [None]
